FAERS Safety Report 13552917 (Version 4)
Quarter: 2019Q1

REPORT INFORMATION
  Report Type: Spontaneous
  Country: US (occurrence: US)
  Receive Date: 20170517
  Receipt Date: 20190321
  Transmission Date: 20190417
  Serious: No
  Sender: FDA-Public Use
  Company Number: US-PFIZER INC-2017184660

PATIENT
  Age: 59 Year
  Sex: Female
  Weight: 68.27 kg

DRUGS (18)
  1. LYRICA [Suspect]
     Active Substance: PREGABALIN
     Indication: BACK PAIN
     Dosage: 150 MG, 1X/DAY (II PO QHS/NIGHTLY)
     Route: 048
     Dates: start: 20170419
  2. LYRICA [Suspect]
     Active Substance: PREGABALIN
     Dosage: 75 MG, 2X/DAY (TAKE 2 CAPSULES BY MOUTH TWO TIMES A DAY)
     Route: 048
  3. MOTRIN [Concomitant]
     Active Substance: IBUPROFEN
     Indication: PYREXIA
  4. PERCOCET [Concomitant]
     Active Substance: ACETAMINOPHEN\OXYCODONE HYDROCHLORIDE
     Indication: PAIN
     Dosage: 1 DF, AS NEEDED {OXYCODONE HYDROCHLORIDE 5 MG/PARACETAMOL 325 MG EVERY 6 HOURS }
     Dates: start: 20170406
  5. LYRICA [Suspect]
     Active Substance: PREGABALIN
     Dosage: 150 MG, 2X/DAY (2 CAPSULES TWICE A DAY)
     Dates: start: 2016
  6. RHINOCORT AQUA [Concomitant]
     Active Substance: BUDESONIDE
     Dosage: 32 UG, 2X/DAY (32 MCG/ACTUATION NASAL SPRAY)
     Route: 045
     Dates: start: 20160914
  7. VALTREX [Concomitant]
     Active Substance: VALACYCLOVIR HYDROCHLORIDE
     Indication: ORAL HERPES
     Dosage: 2 G, AS NEEDED (TWICE DAILY FOR ONE DAY AS NEEDED )
     Route: 048
     Dates: start: 20150916
  8. ADVIL [Concomitant]
     Active Substance: IBUPROFEN
     Indication: PAIN
     Dosage: 800 MG, AS NEEDED (VERY 8 HOURS AS NEEDED FOR PAIN OR FEVER)
     Route: 048
     Dates: start: 20160930
  9. CONCERTA [Concomitant]
     Active Substance: METHYLPHENIDATE HYDROCHLORIDE
     Indication: HYPERSOMNIA
     Dosage: 36 MG, DAILY
     Route: 048
     Dates: start: 20170330
  10. VITAMIN C [Concomitant]
     Active Substance: ASCORBIC ACID
     Dosage: 250 MG, 2X/DAY
     Route: 048
     Dates: start: 20160420
  11. MOTRIN [Concomitant]
     Active Substance: IBUPROFEN
     Indication: PAIN
     Dosage: 800 MG, AS NEEDED (EVERY 8 HOURS AS NEEDED FOR PAIN OR FEVER)
     Route: 048
     Dates: start: 20160930
  12. LYRICA [Suspect]
     Active Substance: PREGABALIN
     Indication: NEUROPATHY PERIPHERAL
     Dosage: 75 MG, 5 CAPSULES A DAY
  13. CYMBALTA [Concomitant]
     Active Substance: DULOXETINE HYDROCHLORIDE
     Dosage: 60 MG, DAILY
     Route: 048
     Dates: start: 20170402
  14. LYRICA [Suspect]
     Active Substance: PREGABALIN
     Indication: NEURALGIA
     Dosage: 150 MG, 1X/DAY (NIGHTLY)
     Route: 048
     Dates: start: 20170405, end: 20170419
  15. CETRIZINE [Concomitant]
     Active Substance: CETIRIZINE HYDROCHLORIDE
     Dosage: 10 MG, AS NEEDED (DAILY)
     Route: 048
  16. ADVIL [Concomitant]
     Active Substance: IBUPROFEN
     Indication: PYREXIA
  17. LYRICA [Suspect]
     Active Substance: PREGABALIN
     Dosage: UNK
  18. VITAMIN D [Concomitant]
     Active Substance: CHOLECALCIFEROL
     Dosage: 50000 IU, WEEKLY
     Route: 048
     Dates: start: 20160914

REACTIONS (2)
  - Somnolence [Recovering/Resolving]
  - Product use issue [Unknown]

NARRATIVE: CASE EVENT DATE: 2017
